FAERS Safety Report 6912626-1 (Version None)
Quarter: 2010Q3

REPORT INFORMATION
  Report Type: 
  Country: None (occurrence: None)
  Receive Date: 20100806
  Receipt Date: 20080902
  Transmission Date: 20110219
  Serious: Yes (Other)
  Sender: FDA-Public Use
  Company Number: US-PFIZER INC-2008062231

PATIENT
  Sex: Female
  Weight: 36.3 kg

DRUGS (8)
  1. DILANTIN [Suspect]
     Indication: CONVULSION
     Dates: start: 20080606, end: 20080723
  2. TOPAMAX [Concomitant]
  3. ZONEGRAN [Concomitant]
  4. XANAX [Concomitant]
  5. ZANTAC [Concomitant]
  6. PREMARIN [Concomitant]
  7. TIMOLOL MALEATE [Concomitant]
  8. VICODIN [Concomitant]

REACTIONS (2)
  - RASH [None]
  - RASH MACULAR [None]
